FAERS Safety Report 25030715 (Version 4)
Quarter: 2025Q2

REPORT INFORMATION
  Report Type: Report from Study
  Country: CA (occurrence: CA)
  Receive Date: 20250303
  Receipt Date: 20250619
  Transmission Date: 20250716
  Serious: Yes (Other)
  Sender: TAKEDA
  Company Number: CA-TAKEDA-2024TUS107522

PATIENT
  Sex: Female

DRUGS (20)
  1. VEDOLIZUMAB [Suspect]
     Active Substance: VEDOLIZUMAB
     Indication: Immune-mediated enterocolitis
     Dates: start: 20240711, end: 20241015
  2. VEDOLIZUMAB [Suspect]
     Active Substance: VEDOLIZUMAB
  3. PREDNISONE [Concomitant]
     Active Substance: PREDNISONE
     Dosage: 30 MILLIGRAM, QD
     Dates: start: 202404
  4. IMODIUM [Concomitant]
     Active Substance: LOPERAMIDE HYDROCHLORIDE
  5. SYNTHROID [Concomitant]
     Active Substance: LEVOTHYROXINE SODIUM
  6. KEYTRUDA [Concomitant]
     Active Substance: PEMBROLIZUMAB
  7. DEXAMETHASONE [Concomitant]
     Active Substance: DEXAMETHASONE
  8. CIPRALEX [Concomitant]
     Active Substance: ESCITALOPRAM OXALATE
     Indication: Anxiety
  9. PANTOPRAZOLE [Concomitant]
     Active Substance: PANTOPRAZOLE
  10. RANITIDINE [Concomitant]
     Active Substance: RANITIDINE
  11. Prochlorazine [Concomitant]
  12. AMLODIPINE [Concomitant]
     Active Substance: AMLODIPINE BESYLATE
  13. TRAVOPROST [Concomitant]
     Active Substance: TRAVOPROST
  14. VITAMIN D [Concomitant]
     Active Substance: VITAMIN D NOS
  15. CALCIUM [Concomitant]
     Active Substance: CALCIUM
  16. FOLIC ACID [Concomitant]
     Active Substance: FOLIC ACID
  17. Iron + vitamin c [Concomitant]
  18. TYLENOL [Concomitant]
     Active Substance: ACETAMINOPHEN
  19. MORPHINE [Concomitant]
     Active Substance: MORPHINE
  20. B12 [Concomitant]

REACTIONS (5)
  - Lung cancer metastatic [Unknown]
  - Diarrhoea [Recovered/Resolved]
  - Product dose omission issue [Unknown]
  - Asthenia [Unknown]
  - Blood pressure increased [Unknown]
